FAERS Safety Report 7016134-1 (Version None)
Quarter: 2010Q3

REPORT INFORMATION
  Report Type: 
  Country: None (occurrence: None)
  Receive Date: 20100927
  Receipt Date: 20100923
  Transmission Date: 20110219
  Serious: Yes (Death)
  Sender: FDA-Public Use
  Company Number: GB-TEVA-242448ISR

PATIENT
  Age: 76 Year
  Sex: Female
  Weight: 92 kg

DRUGS (2)
  1. METFORMIN [Suspect]
     Route: 048
     Dates: start: 20100209, end: 20100209
  2. QUININE [Suspect]
     Route: 048
     Dates: start: 20100209, end: 20100210

REACTIONS (14)
  - ALANINE AMINOTRANSFERASE INCREASED [None]
  - CARDIAC ARREST [None]
  - CINCHONISM [None]
  - COGNITIVE DISORDER [None]
  - HEPATIC CONGESTION [None]
  - HEPATOCELLULAR INJURY [None]
  - INTERNATIONAL NORMALISED RATIO INCREASED [None]
  - METABOLIC ACIDOSIS [None]
  - MULTIPLE DRUG OVERDOSE [None]
  - OEDEMA [None]
  - OEDEMA PERIPHERAL [None]
  - OVERDOSE [None]
  - PULMONARY CONGESTION [None]
  - SUDDEN CARDIAC DEATH [None]
